FAERS Safety Report 4522751-0 (Version None)
Quarter: 2004Q4

REPORT INFORMATION
  Report Type: 
  Country: None (occurrence: None)
  Receive Date: 20041207
  Receipt Date: 20041124
  Transmission Date: 20050328
  Serious: Yes (Hospitalization)
  Sender: FDA-Public Use
  Company Number: 805#1#2004-00034

PATIENT
  Sex: Female

DRUGS (1)
  1. PROSTANDIN     (ALPROSTADIL    (PAOD) [Suspect]
     Indication: LUMBAR SPINAL STENOSIS
     Dosage: 60 MCG INTRAVENOUS DRIP
     Route: 041
     Dates: start: 20041112, end: 20041112

REACTIONS (3)
  - FEELING ABNORMAL [None]
  - RESPIRATORY ARREST [None]
  - SHOCK [None]
